FAERS Safety Report 10057955 (Version 1)
Quarter: 2014Q2

REPORT INFORMATION
  Report Type: Spontaneous
  Country: US (occurrence: None)
  Receive Date: 20140403
  Receipt Date: 20140403
  Transmission Date: 20141212
  Serious: Yes (Other)
  Sender: FDA-Public Use
  Company Number: None

PATIENT
  Age: 8 Year
  Sex: Male
  Weight: 29.03 kg

DRUGS (1)
  1. AMPHETAMINE SALTS ER 20MG [Suspect]
     Indication: ATTENTION DEFICIT/HYPERACTIVITY DISORDER
     Dosage: 1, ONCE DAILY, TAKEN BY MOUTH
     Route: 048
     Dates: start: 20140322, end: 20140402

REACTIONS (4)
  - Anxiety [None]
  - Agitation [None]
  - Insomnia [None]
  - Product quality issue [None]
